FAERS Safety Report 14524499 (Version 2)
Quarter: 2018Q1

REPORT INFORMATION
  Report Type: Spontaneous
  Country: US (occurrence: US)
  Receive Date: 20180213
  Receipt Date: 20180310
  Transmission Date: 20180509
  Serious: No
  Sender: FDA-Public Use
  Company Number: US-JNJFOC-20180205260

PATIENT
  Age: 33 Year
  Sex: Female
  Weight: 91.1 kg

DRUGS (2)
  1. VISINE A [Suspect]
     Active Substance: NAPHAZOLINE HYDROCHLORIDE\PHENIRAMINE MALEATE
     Route: 047
  2. VISINE A [Suspect]
     Active Substance: NAPHAZOLINE HYDROCHLORIDE\PHENIRAMINE MALEATE
     Indication: PRODUCT USED FOR UNKNOWN INDICATION
     Route: 047
     Dates: start: 20180201

REACTIONS (4)
  - Vision blurred [Unknown]
  - Pupils unequal [Unknown]
  - Mydriasis [Unknown]
  - Migraine [Unknown]

NARRATIVE: CASE EVENT DATE: 20180201
